FAERS Safety Report 15782016 (Version 2)
Quarter: 2019Q1

REPORT INFORMATION
  Report Type: Spontaneous
  Country: US (occurrence: US)
  Receive Date: 20190102
  Receipt Date: 20190201
  Transmission Date: 20190417
  Serious: Yes (Other)
  Sender: FDA-Public Use
  Company Number: US-PFIZER INC-2019000317

PATIENT
  Age: 43 Year
  Sex: Female
  Weight: 87.75 kg

DRUGS (3)
  1. LISINOPRIL HCT [HYDROCHLOROTHIAZIDE;LISINOPRIL DIHYDRATE] [Concomitant]
     Indication: HYPERTENSION
     Dosage: UNK, 1X/DAY [LISINOPRIL 20MG/ HYDROCHLOROTHIAZIDE 12.5MG]
     Route: 048
  2. LYRICA [Suspect]
     Active Substance: PREGABALIN
     Indication: FIBROMYALGIA
     Dosage: 150 MG, 2X/DAY
     Route: 048
  3. TRAMADOL. [Concomitant]
     Active Substance: TRAMADOL
     Indication: PAIN
     Dosage: 50 MG, AS NEEDED (EVERY 4 HOURS AS NEEDED)
     Route: 048

REACTIONS (17)
  - Insomnia [Not Recovered/Not Resolved]
  - Dyspepsia [Not Recovered/Not Resolved]
  - Bone pain [Not Recovered/Not Resolved]
  - Mood swings [Not Recovered/Not Resolved]
  - Osteoarthritis [Unknown]
  - Feeling abnormal [Not Recovered/Not Resolved]
  - Formication [Not Recovered/Not Resolved]
  - Retching [Not Recovered/Not Resolved]
  - Decreased appetite [Not Recovered/Not Resolved]
  - Thinking abnormal [Not Recovered/Not Resolved]
  - Drug effect incomplete [Unknown]
  - Blindness unilateral [Not Recovered/Not Resolved]
  - Vision blurred [Not Recovered/Not Resolved]
  - Nausea [Not Recovered/Not Resolved]
  - Bradyphrenia [Not Recovered/Not Resolved]
  - Osteoporosis [Not Recovered/Not Resolved]
  - Headache [Not Recovered/Not Resolved]

NARRATIVE: CASE EVENT DATE: 2009
